FAERS Safety Report 16217340 (Version 1)
Quarter: 2019Q2

REPORT INFORMATION
  Report Type: Spontaneous
  Country: US (occurrence: US)
  Receive Date: 20190419
  Receipt Date: 20190419
  Transmission Date: 20190711
  Serious: No
  Sender: FDA-Public Use
  Company Number: US-PFIZER INC-2019157964

PATIENT
  Age: 67 Year
  Sex: Female
  Weight: 82.55 kg

DRUGS (1)
  1. METRONIDAZOLE. [Suspect]
     Active Substance: METRONIDAZOLE
     Indication: BACTERIAL INFECTION
     Dosage: 500 MG, 2X/DAY
     Route: 048
     Dates: start: 20190404

REACTIONS (4)
  - Paraesthesia [Unknown]
  - Chest pain [Recovered/Resolved]
  - Hypoaesthesia [Recovering/Resolving]
  - Myalgia [Unknown]

NARRATIVE: CASE EVENT DATE: 20190410
